FAERS Safety Report 7129300-1 (Version None)
Quarter: 2010Q4

REPORT INFORMATION
  Report Type: 
  Country: None (occurrence: None)
  Receive Date: 20101130
  Receipt Date: 20101118
  Transmission Date: 20110411
  Serious: No
  Sender: FDA-Public Use
  Company Number: US-PFIZER INC-2010152580

PATIENT
  Sex: Male
  Weight: 89.796 kg

DRUGS (2)
  1. XALATAN [Suspect]
     Indication: INTRAOCULAR PRESSURE INCREASED
     Dosage: UNK
     Dates: start: 20100701, end: 20100901
  2. XALATAN [Suspect]
     Indication: GLAUCOMA

REACTIONS (2)
  - EYE IRRITATION [None]
  - HYPERSENSITIVITY [None]
